FAERS Safety Report 8759730 (Version 2)
Quarter: 2012Q4

REPORT INFORMATION
  Report Type: Report from Study
  Country: CA (occurrence: CA)
  Receive Date: 20120829
  Receipt Date: 20121019
  Transmission Date: 20130627
  Serious: Yes (Hospitalization, Disabling, Other)
  Sender: FDA-Public Use
  Company Number: CA-ROCHE-1007873

PATIENT
  Age: 60 Year
  Sex: Female
  Weight: 89.8 kg

DRUGS (26)
  1. TOCILIZUMAB [Suspect]
     Indication: RHEUMATOID ARTHRITIS
     Route: 042
     Dates: start: 20110906
  2. TOCILIZUMAB [Suspect]
     Route: 042
     Dates: start: 20111004
  3. ACTONEL [Concomitant]
     Route: 065
  4. CALCIUM [Concomitant]
     Route: 065
  5. DIOVAN [Concomitant]
     Route: 065
  6. FENTANYL [Concomitant]
     Route: 065
  7. FOLIC ACID [Concomitant]
     Route: 065
  8. FUROSEMIDE [Concomitant]
     Route: 065
  9. LANTUS [Concomitant]
     Route: 065
  10. LOSEC (CANADA) [Concomitant]
     Route: 065
  11. METHOTREXATE [Concomitant]
     Route: 065
  12. MOBICOX [Concomitant]
     Route: 065
  13. NASONEX [Concomitant]
     Route: 065
  14. PREDNISONE [Concomitant]
     Route: 065
  15. MULTI-VITAMIN SUPPLEMENT [Concomitant]
     Route: 065
  16. RENEDIL [Concomitant]
     Route: 065
  17. SPIRIVA [Concomitant]
     Route: 065
  18. SYMBICORT [Concomitant]
     Route: 065
  19. ACETAMINOPHEN [Concomitant]
     Route: 065
  20. VENTOLIN [Concomitant]
     Route: 065
  21. VITAMIN B12 [Concomitant]
     Route: 065
  22. VITAMIN C [Concomitant]
     Route: 065
  23. ZINC [Concomitant]
     Route: 065
  24. TYLENOL #3 (CANADA) [Concomitant]
  25. CIPRO [Concomitant]
     Route: 065
     Dates: start: 20111212
  26. CLINDAMYCIN [Concomitant]
     Route: 065
     Dates: start: 20111209

REACTIONS (8)
  - Myocardial infarction [Recovering/Resolving]
  - Infection [Unknown]
  - Wound [Not Recovered/Not Resolved]
  - Foot fracture [Not Recovered/Not Resolved]
  - Skin ulcer [Not Recovered/Not Resolved]
  - Cellulitis [Recovering/Resolving]
  - Skin ulcer haemorrhage [Recovered/Resolved]
  - Sepsis [Not Recovered/Not Resolved]
